FAERS Safety Report 15854912 (Version 1)
Quarter: 2019Q1

REPORT INFORMATION
  Report Type: Spontaneous
  Country: FR (occurrence: FR)
  Receive Date: 20190122
  Receipt Date: 20190122
  Transmission Date: 20190417
  Serious: Yes (Other)
  Sender: FDA-Public Use
  Company Number: FR-MYLANLABS-2019M1004277

PATIENT
  Age: 58 Year
  Sex: Female
  Weight: 72 kg

DRUGS (10)
  1. NEFOPAM [Suspect]
     Active Substance: NEFOPAM
     Indication: CANCER PAIN
  2. CODEINE [Suspect]
     Active Substance: CODEINE
     Indication: PAIN IN EXTREMITY
  3. OXYCODONE [Suspect]
     Active Substance: OXYCODONE
     Indication: PAIN IN EXTREMITY
     Route: 065
  4. TRAMADOL. [Suspect]
     Active Substance: TRAMADOL
     Indication: CANCER PAIN
     Route: 065
  5. TRAMADOL. [Suspect]
     Active Substance: TRAMADOL
     Indication: PAIN IN EXTREMITY
  6. NEFOPAM [Suspect]
     Active Substance: NEFOPAM
     Indication: PAIN IN EXTREMITY
     Route: 065
  7. PARACETAMOL [Suspect]
     Active Substance: ACETAMINOPHEN
     Indication: CANCER PAIN
  8. OXYCODONE [Suspect]
     Active Substance: OXYCODONE
     Indication: CANCER PAIN
  9. CODEINE [Suspect]
     Active Substance: CODEINE
     Indication: CANCER PAIN
     Route: 065
  10. PARACETAMOL [Suspect]
     Active Substance: ACETAMINOPHEN
     Indication: PAIN IN EXTREMITY
     Route: 065

REACTIONS (4)
  - Drug ineffective [Unknown]
  - Nausea [Unknown]
  - Dizziness [Unknown]
  - Sensory disturbance [Unknown]
